FAERS Safety Report 11937346 (Version 1)
Quarter: 2016Q1

REPORT INFORMATION
  Report Type: Spontaneous
  Country: KR (occurrence: KR)
  Receive Date: 20160121
  Receipt Date: 20160121
  Transmission Date: 20160526
  Serious: Yes (Hospitalization)
  Sender: FDA-Public Use
  Company Number: KR-AMGEN-KORCT2016005120

PATIENT
  Age: 49 Year
  Sex: Female
  Weight: 68.3 kg

DRUGS (36)
  1. G-LASTA [Suspect]
     Active Substance: PEGFILGRASTIM
     Indication: FEBRILE NEUTROPENIA
     Dosage: 6 MG, Q3WK
     Route: 058
     Dates: start: 20150920
  2. G-LASTA [Suspect]
     Active Substance: PEGFILGRASTIM
     Dosage: 6 MG, Q3WK
     Route: 058
     Dates: start: 20151101
  3. CYCLOPHOSPHAMIDE. [Concomitant]
     Active Substance: CYCLOPHOSPHAMIDE
     Dosage: 830 MG, UNK
     Route: 042
     Dates: start: 20150919, end: 20150919
  4. FILGRASTIM [Concomitant]
     Active Substance: FILGRASTIM
     Dosage: 150MCG
     Route: 058
     Dates: start: 20151106, end: 20151107
  5. DOCETAXEL. [Concomitant]
     Active Substance: DOCETAXEL
     Dosage: 124 MG, UNK
     Route: 042
     Dates: start: 20151121, end: 20151121
  6. DOCETAXEL. [Concomitant]
     Active Substance: DOCETAXEL
     Dosage: 124 MG, UNK
     Route: 042
     Dates: start: 20160102, end: 20160102
  7. DOXORUBICIN [Concomitant]
     Active Substance: DOXORUBICIN
     Dosage: 83 MG, UNK
     Route: 042
     Dates: start: 20151121, end: 20151121
  8. FILGRASTIM [Concomitant]
     Active Substance: FILGRASTIM
     Dosage: 150MCG
     Route: 058
     Dates: start: 20150925, end: 20150926
  9. FILGRASTIM [Concomitant]
     Active Substance: FILGRASTIM
     Dosage: 150MCG
     Route: 058
     Dates: start: 20151127, end: 20151128
  10. DOXORUBICIN [Concomitant]
     Active Substance: DOXORUBICIN
     Dosage: 83 MG, UNK
     Route: 042
     Dates: start: 20150919, end: 20150919
  11. CYCLOPHOSPHAMIDE. [Concomitant]
     Active Substance: CYCLOPHOSPHAMIDE
     Dosage: 830 MG, UNK
     Route: 042
     Dates: start: 20151010, end: 20151010
  12. CYCLOPHOSPHAMIDE. [Concomitant]
     Active Substance: CYCLOPHOSPHAMIDE
     Dosage: 830 MG, UNK
     Route: 042
     Dates: start: 20151121, end: 20151121
  13. CYCLOPHOSPHAMIDE. [Concomitant]
     Active Substance: CYCLOPHOSPHAMIDE
     Dosage: 830 MG, UNK
     Route: 042
     Dates: start: 20160102, end: 20160102
  14. CEFOBACTAM [Concomitant]
     Active Substance: CEFOPERAZONE SODIUM\SULBACTAM SODIUM
     Dosage: 2 G, UNK
     Route: 042
     Dates: start: 20150925, end: 20150926
  15. G-LASTA [Suspect]
     Active Substance: PEGFILGRASTIM
     Dosage: 6 MG, Q3WK
     Route: 058
     Dates: start: 20151011
  16. DOCETAXEL. [Concomitant]
     Active Substance: DOCETAXEL
     Dosage: 124 MG, UNK
     Route: 042
     Dates: start: 20150919, end: 20150919
  17. DOCETAXEL. [Concomitant]
     Active Substance: DOCETAXEL
     Dosage: 124 MG, UNK
     Route: 042
     Dates: start: 20151212, end: 20151212
  18. DOXORUBICIN [Concomitant]
     Active Substance: DOXORUBICIN
     Dosage: 83 MG, UNK
     Route: 042
     Dates: start: 20151010, end: 20151010
  19. G-LASTA [Suspect]
     Active Substance: PEGFILGRASTIM
     Dosage: 6 MG, Q3WK
     Route: 058
     Dates: start: 20160103
  20. DOCETAXEL. [Concomitant]
     Active Substance: DOCETAXEL
     Dosage: 124 MG, UNK
     Route: 042
     Dates: start: 20151010, end: 20151010
  21. TOBRAMYCIN. [Concomitant]
     Active Substance: TOBRAMYCIN
     Dosage: 200 MG, UNK
     Route: 042
     Dates: start: 20150925, end: 20150926
  22. TOBRAMYCIN. [Concomitant]
     Active Substance: TOBRAMYCIN
     Dosage: 200 MG, UNK
     Route: 042
     Dates: start: 20151016, end: 20151016
  23. DOCETAXEL. [Concomitant]
     Active Substance: DOCETAXEL
     Dosage: 124 MG, UNK
     Route: 042
     Dates: start: 20151031, end: 20151031
  24. DOXORUBICIN [Concomitant]
     Active Substance: DOXORUBICIN
     Dosage: 83 MG, UNK
     Route: 042
     Dates: start: 20151031, end: 20151031
  25. CEFOBACTAM [Concomitant]
     Active Substance: CEFOPERAZONE SODIUM\SULBACTAM SODIUM
     Dosage: 2 G, UNK
     Route: 042
     Dates: start: 20151106, end: 20151107
  26. TOBRAMYCIN. [Concomitant]
     Active Substance: TOBRAMYCIN
     Dosage: 200 MG, UNK
     Route: 042
     Dates: start: 20151127, end: 20151128
  27. FILGRASTIM [Concomitant]
     Active Substance: FILGRASTIM
     Dosage: 150MCG
     Route: 058
     Dates: start: 20151016, end: 20151016
  28. CYCLOPHOSPHAMIDE. [Concomitant]
     Active Substance: CYCLOPHOSPHAMIDE
     Dosage: 830 MG, UNK
     Route: 042
     Dates: start: 20151031, end: 20151031
  29. CEFOBACTAM [Concomitant]
     Active Substance: CEFOPERAZONE SODIUM\SULBACTAM SODIUM
     Dosage: 2 G, UNK
     Route: 042
     Dates: start: 20151127, end: 20151128
  30. TOBRAMYCIN. [Concomitant]
     Active Substance: TOBRAMYCIN
     Dosage: 200 MG, UNK
     Route: 042
     Dates: start: 20151106, end: 20151107
  31. G-LASTA [Suspect]
     Active Substance: PEGFILGRASTIM
     Dosage: 6 MG, Q3WK
     Route: 058
     Dates: start: 20151122
  32. G-LASTA [Suspect]
     Active Substance: PEGFILGRASTIM
     Dosage: 6 MG, Q3WK
     Route: 058
     Dates: start: 20151213
  33. DOXORUBICIN [Concomitant]
     Active Substance: DOXORUBICIN
     Dosage: 83 MG, UNK
     Route: 042
     Dates: start: 20151212, end: 20151212
  34. DOXORUBICIN [Concomitant]
     Active Substance: DOXORUBICIN
     Dosage: 83 MG, UNK
     Route: 042
     Dates: start: 20160102, end: 20160102
  35. CYCLOPHOSPHAMIDE. [Concomitant]
     Active Substance: CYCLOPHOSPHAMIDE
     Dosage: 830 MG, UNK
     Route: 042
     Dates: start: 20151212, end: 20151212
  36. CEFOBACTAM [Concomitant]
     Active Substance: CEFOPERAZONE SODIUM\SULBACTAM SODIUM
     Dosage: 2 G, UNK
     Route: 042
     Dates: start: 20151016, end: 20151016

REACTIONS (1)
  - Neutropenia [Recovered/Resolved]

NARRATIVE: CASE EVENT DATE: 20160108
